FAERS Safety Report 25784686 (Version 1)
Quarter: 2025Q3

REPORT INFORMATION
  Report Type: Spontaneous
  Country: EU (occurrence: EU)
  Receive Date: 20250910
  Receipt Date: 20250910
  Transmission Date: 20251020
  Serious: Yes (Hospitalization, Other)
  Sender: NAARI PHARMA
  Company Number: EU-NAARI PTE LIMITED-2025NP000064

PATIENT
  Age: 27 Year
  Sex: Female

DRUGS (1)
  1. LEVONORGESTREL AND ETHINYL ESTRADIOL [Suspect]
     Active Substance: ETHINYL ESTRADIOL\LEVONORGESTREL
     Indication: Dysmenorrhoea
     Route: 065

REACTIONS (4)
  - Drug-induced liver injury [Unknown]
  - Cholelithiasis [Unknown]
  - Pruritus [Unknown]
  - Off label use [Unknown]
